FAERS Safety Report 5949277-1 (Version None)
Quarter: 2008Q4

REPORT INFORMATION
  Report Type: 
  Country: None (occurrence: None)
  Receive Date: 20081111
  Receipt Date: 20081030
  Transmission Date: 20090506
  Serious: Yes (Hospitalization, Other)
  Sender: FDA-Public Use
  Company Number: AU-AMGEN-US314498

PATIENT
  Sex: Male
  Weight: 84 kg

DRUGS (13)
  1. ARANESP [Suspect]
     Indication: DIALYSIS
     Route: 058
     Dates: start: 20031105, end: 20081021
  2. ASPIRIN [Concomitant]
  3. OMEPRAL [Concomitant]
  4. SOTALOL HCL [Concomitant]
  5. FOLIC ACID [Concomitant]
  6. RENAGEL [Concomitant]
  7. MAGMIN [Concomitant]
  8. LIPITOR [Concomitant]
  9. AVAPRO [Concomitant]
  10. ROCALTROL [Concomitant]
  11. LEVOTHYROXINE SODIUM [Concomitant]
  12. IRON [Concomitant]
     Route: 042
     Dates: start: 20070531, end: 20070806
  13. IRON [Concomitant]
     Route: 042
     Dates: start: 20070118, end: 20071224

REACTIONS (6)
  - AORTIC VALVE REPLACEMENT [None]
  - GASTROINTESTINAL ANGIODYSPLASIA [None]
  - HEPATIC CIRRHOSIS [None]
  - MYELODYSPLASTIC SYNDROME [None]
  - PORTAL HYPERTENSION [None]
  - SPLENOMEGALY [None]
